FAERS Safety Report 10065154 (Version 1)
Quarter: 2014Q1

REPORT INFORMATION
  Report Type: Spontaneous
  Country: US (occurrence: None)
  Receive Date: 20140328
  Receipt Date: 20140328
  Transmission Date: 20141002
  Serious: No
  Sender: FDA-Public Use
  Company Number: CABO14003928

PATIENT
  Age: 44 Year
  Sex: Female

DRUGS (8)
  1. COMETRIQ (CABOZANTINIB) CAPSULE [Suspect]
     Indication: THYROID CANCER
     Route: 048
     Dates: start: 20130906
  2. OXYCODONE (OXYCODONE) [Concomitant]
  3. BENTYL (DICYCLOVERINE HYDROCHLORIDE) [Concomitant]
  4. OXYCONTIN (OXYCODONE HYDROCHLORIDE) [Concomitant]
  5. SYNTHROID (LEVOTHYROXINE SODIUM) [Concomitant]
  6. LEVOTHYROXINE (LEVOTHYROXINE) [Concomitant]
  7. REMERON (MIRTAZAPINE) [Concomitant]
  8. CAPRELSA (VANDETANIB) [Concomitant]

REACTIONS (5)
  - Haemorrhoids [None]
  - Epistaxis [None]
  - Diarrhoea [None]
  - Weight decreased [None]
  - Fatigue [None]
